FAERS Safety Report 9850281 (Version 1)
Quarter: 2014Q1

REPORT INFORMATION
  Report Type: Spontaneous
  Country: FR (occurrence: FR)
  Receive Date: 20140128
  Receipt Date: 20140128
  Transmission Date: 20141002
  Serious: Yes (Hospitalization)
  Sender: FDA-Public Use
  Company Number: FR-VIIV HEALTHCARE LIMITED-B0961669A

PATIENT
  Age: 63 Year
  Sex: Female

DRUGS (7)
  1. KIVEXA [Suspect]
     Indication: HIV INFECTION
     Route: 048
     Dates: start: 20100407, end: 201004
  2. PREZISTA [Concomitant]
     Indication: HIV INFECTION
     Dosage: 300MG UNKNOWN
     Route: 048
     Dates: start: 20100407
  3. NORVIR [Concomitant]
     Indication: HIV INFECTION
     Dosage: 100MG UNKNOWN
     Route: 048
     Dates: start: 20100407
  4. CARDENSIEL [Concomitant]
     Route: 048
  5. KARDEGIC [Concomitant]
     Route: 048
  6. TAZOCILLINE [Concomitant]
     Route: 065
  7. TARGOCID [Concomitant]
     Route: 065

REACTIONS (1)
  - Hepatocellular injury [Recovered/Resolved]
